FAERS Safety Report 25467420 (Version 1)
Quarter: 2025Q2

REPORT INFORMATION
  Report Type: Spontaneous
  Country: US (occurrence: US)
  Receive Date: 20250623
  Receipt Date: 20250623
  Transmission Date: 20250716
  Serious: Yes (Other)
  Sender: ABBVIE
  Company Number: US-ABBVIE-6335843

PATIENT
  Sex: Male

DRUGS (1)
  1. DURYSTA [Suspect]
     Active Substance: BIMATOPROST
     Indication: Open angle glaucoma
     Route: 031
     Dates: end: 20250616

REACTIONS (2)
  - Medical device removal [Unknown]
  - Floppy eyelid syndrome [Unknown]

NARRATIVE: CASE EVENT DATE: 20250616
